FAERS Safety Report 8032985-9 (Version None)
Quarter: 2012Q1

REPORT INFORMATION
  Report Type: 
  Country: None (occurrence: None)
  Receive Date: 20120110
  Receipt Date: 20111230
  Transmission Date: 20120608
  Serious: Yes (Hospitalization, Other)
  Sender: FDA-Public Use
  Company Number: US-ELI_LILLY_AND_COMPANY-US201001001392

PATIENT
  Sex: Male

DRUGS (8)
  1. NAMENDA [Concomitant]
  2. ASPIRIN [Concomitant]
     Dosage: 81 MG, QD
  3. FORTEO [Suspect]
     Dosage: 20 UG, QD
  4. VITAMINS NOS [Concomitant]
  5. FISH OIL [Concomitant]
  6. CALCIUM ACETATE [Concomitant]
  7. FORTEO [Suspect]
     Indication: OSTEOPOROSIS
     Dosage: 20 UG, DAILY (1/D)
     Route: 065
     Dates: start: 20091211
  8. EXELON [Concomitant]

REACTIONS (7)
  - SENSATION OF HEAVINESS [None]
  - BONE DENSITY DECREASED [None]
  - ARTHRALGIA [None]
  - FATIGUE [None]
  - SILENT MYOCARDIAL INFARCTION [None]
  - PAIN IN EXTREMITY [None]
  - VASCULAR OCCLUSION [None]
